FAERS Safety Report 6863679-0 (Version None)
Quarter: 2010Q3

REPORT INFORMATION
  Report Type: 
  Country: None (occurrence: None)
  Receive Date: 20100721
  Receipt Date: 20080310
  Transmission Date: 20110219
  Serious: No
  Sender: FDA-Public Use
  Company Number: US-PFIZER INC-2008022899

PATIENT
  Sex: Female
  Weight: 47.727 kg

DRUGS (4)
  1. CHANTIX [Suspect]
     Indication: SMOKING CESSATION THERAPY
     Route: 048
     Dates: start: 20070901
  2. LISINOPRIL [Concomitant]
  3. XANAX [Concomitant]
  4. PAXIL [Concomitant]

REACTIONS (1)
  - ABDOMINAL PAIN UPPER [None]
